FAERS Safety Report 8060162-4 (Version None)
Quarter: 2012Q1

REPORT INFORMATION
  Report Type: 
  Country: None (occurrence: None)
  Receive Date: 20120120
  Receipt Date: 20120117
  Transmission Date: 20120608
  Serious: Yes (Other)
  Sender: FDA-Public Use
  Company Number: BR-PFIZER INC-2012013767

PATIENT
  Age: 75 Year
  Sex: Male

DRUGS (4)
  1. FOLIC ACID [Concomitant]
     Indication: ANAEMIA
     Dosage: UNK
     Dates: start: 20080101
  2. CLONAZEPAM [Concomitant]
     Indication: RELAXATION THERAPY
     Dosage: UNK
     Dates: start: 20110101
  3. NEURONTIN [Suspect]
     Indication: PAIN
     Dosage: UNK
     Route: 048
     Dates: start: 20110101
  4. CYMBALTA [Concomitant]
     Indication: DEPRESSION
     Dosage: UNK
     Dates: start: 20110101

REACTIONS (3)
  - PROSTATE CANCER [None]
  - RASH MACULAR [None]
  - MALAISE [None]
